FAERS Safety Report 9580719 (Version 1)
Quarter: 2013Q3

REPORT INFORMATION
  Report Type: Spontaneous
  Country: US (occurrence: None)
  Receive Date: 20130916
  Receipt Date: 20130916
  Transmission Date: 20140515
  Serious: Yes (Other)
  Sender: FDA-Public Use
  Company Number: JPI-P-027242

PATIENT
  Age: 60 Year
  Sex: Female
  Weight: 58.97 kg

DRUGS (3)
  1. XYREM [Suspect]
     Indication: CATAPLEXY
     Route: 048
     Dates: start: 20121116
  2. RISEDRONATE SODIUM [Concomitant]
  3. CALCIUM W/ VITAMIN D [Concomitant]

REACTIONS (3)
  - Blood pressure increased [None]
  - Nausea [None]
  - Dizziness [None]
